FAERS Safety Report 9174598 (Version 4)
Quarter: 2013Q2

REPORT INFORMATION
  Report Type: Spontaneous
  Country: IT (occurrence: IT)
  Receive Date: 20130320
  Receipt Date: 20130506
  Transmission Date: 20140414
  Serious: Yes (Hospitalization)
  Sender: FDA-Public Use
  Company Number: IT-PFIZER INC-2013087573

PATIENT
  Age: 67 Year
  Sex: Female

DRUGS (4)
  1. TOTALIP [Suspect]
     Dosage: SINGLE DOSE
     Route: 048
     Dates: start: 20110307, end: 20130307
  2. DICLOFENAC [Suspect]
     Dosage: 2 DF, 1X/DAY
     Route: 030
     Dates: start: 20130302, end: 20130307
  3. ATENOLOL [Concomitant]
     Dosage: 25 MG/DAY
     Route: 048
     Dates: start: 20130301, end: 20130307
  4. BLOPRESID [Concomitant]
     Dosage: 1 DF, UNK
     Route: 048
     Dates: start: 20070101, end: 20130307

REACTIONS (1)
  - Pancreatitis acute [Recovered/Resolved]
